FAERS Safety Report 5308678-5 (Version None)
Quarter: 2007Q2

REPORT INFORMATION
  Report Type: 
  Country: None (occurrence: None)
  Receive Date: 20070426
  Receipt Date: 20070423
  Transmission Date: 20071010
  Serious: Yes (Hospitalization, Other)
  Sender: FDA-Public Use
  Company Number: US-GLAXOSMITHKLINE-A0648395A

PATIENT
  Age: 61 Year
  Sex: Female

DRUGS (11)
  1. AVANDIA [Suspect]
     Indication: DIABETES MELLITUS NON-INSULIN-DEPENDENT
     Dosage: 4MG PER DAY
     Route: 048
     Dates: start: 20030201, end: 20070210
  2. GLYBURIDE [Concomitant]
  3. LANTUS [Concomitant]
  4. ZESTRIL [Concomitant]
  5. LASIX [Concomitant]
  6. LIPITOR [Concomitant]
  7. ASPIRIN [Concomitant]
  8. ALLOPURINOL [Concomitant]
  9. OSCAL [Concomitant]
  10. TRICOR [Concomitant]
  11. VITAMIN D [Concomitant]
     Indication: VITAMIN D DECREASED

REACTIONS (10)
  - DEPRESSION [None]
  - FALL [None]
  - FEAR [None]
  - FEAR OF FALLING [None]
  - FOOT FRACTURE [None]
  - HAND FRACTURE [None]
  - HYPOGLYCAEMIA [None]
  - LOWER LIMB FRACTURE [None]
  - SPINAL FRACTURE [None]
  - TRANSIENT ISCHAEMIC ATTACK [None]
